FAERS Safety Report 12054847 (Version 1)
Quarter: 2016Q1

REPORT INFORMATION
  Report Type: Report from Study
  Country: US (occurrence: US)
  Receive Date: 20160209
  Receipt Date: 20160209
  Transmission Date: 20160526
  Serious: No
  Sender: FDA-Public Use
  Company Number: US-ABBVIE-15P-163-1466963-00

PATIENT
  Sex: Male

DRUGS (2)
  1. DIAZEPAM. [Concomitant]
     Active Substance: DIAZEPAM
     Indication: PRODUCT USED FOR UNKNOWN INDICATION
     Dosage: TWO TO FOUR PILLS A DAY
     Route: 048
  2. HUMIRA [Suspect]
     Active Substance: ADALIMUMAB
     Indication: PSORIATIC ARTHROPATHY
     Route: 065
     Dates: start: 2015, end: 201508

REACTIONS (15)
  - Malaise [Unknown]
  - Fatigue [Unknown]
  - Psoriasis [Unknown]
  - Cognitive disorder [Unknown]
  - Confusional state [Unknown]
  - Tooth fracture [Unknown]
  - Lacrimation decreased [Recovered/Resolved]
  - Sinusitis [Recovered/Resolved]
  - Tooth abscess [Not Recovered/Not Resolved]
  - Psoriasis [Recovering/Resolving]
  - Constipation [Unknown]
  - Face oedema [Unknown]
  - Joint swelling [Unknown]
  - Pneumonia [Unknown]
  - Peripheral swelling [Unknown]

NARRATIVE: CASE EVENT DATE: 2015
